FAERS Safety Report 18820614 (Version 2)
Quarter: 2021Q1

REPORT INFORMATION
  Report Type: Spontaneous
  Country: GB (occurrence: GB)
  Receive Date: 20210202
  Receipt Date: 20210210
  Transmission Date: 20210419
  Serious: Yes (Hospitalization, Other)
  Sender: FDA-Public Use
  Company Number: GB-ACCORD-216145

PATIENT
  Age: 32 Year
  Sex: Female

DRUGS (3)
  1. CARBAMAZEPINE. [Concomitant]
     Active Substance: CARBAMAZEPINE
     Indication: EPILEPSY
     Dosage: OR 12.1 MG/KG/DAY
  2. AMITRIPTYLINE [Suspect]
     Active Substance: AMITRIPTYLINE
     Indication: DEPRESSION
     Dosage: HIGH DOSE OR 7.6 MG/KG/DAY
  3. THIAMINE. [Concomitant]
     Active Substance: THIAMINE
     Indication: EPILEPSY
     Dosage: THIAMINE 100 MG ? TABLET  OR 3.0 MG/KG/DAY

REACTIONS (2)
  - Electrocardiogram abnormal [Recovered/Resolved]
  - Ventricular tachycardia [Recovered/Resolved]
